FAERS Safety Report 24849933 (Version 4)
Quarter: 2025Q1

REPORT INFORMATION
  Report Type: Spontaneous
  Country: US (occurrence: US)
  Receive Date: 20250116
  Receipt Date: 20250313
  Transmission Date: 20250409
  Serious: No
  Sender: PFIZER
  Company Number: US-PFIZER INC-202500008726

PATIENT
  Age: 69 Year
  Sex: Female
  Weight: 99.79 kg

DRUGS (5)
  1. MEDROL [Suspect]
     Active Substance: METHYLPREDNISOLONE
     Indication: Bronchitis
     Dates: start: 201806
  2. MEDROL [Suspect]
     Active Substance: METHYLPREDNISOLONE
  3. METHYLPREDNISOLONE [Suspect]
     Active Substance: METHYLPREDNISOLONE
     Indication: Rheumatoid arthritis
     Dosage: 2 MG, DAILY (BOTTLE IS 4 MILLIGRAMS AND I SUPPOSED TO TAKE 2 MILLIGRAMS EVERYDAY)
  4. METHYLPREDNISOLONE [Suspect]
     Active Substance: METHYLPREDNISOLONE
     Indication: Polymyalgia rheumatica
  5. PREDNISONE [Suspect]
     Active Substance: PREDNISONE

REACTIONS (7)
  - Pain [Unknown]
  - Malaise [Unknown]
  - Fatigue [Unknown]
  - Condition aggravated [Recovering/Resolving]
  - Osteoarthritis [Unknown]
  - Illness [Unknown]
  - Off label use [Unknown]
